FAERS Safety Report 14920925 (Version 4)
Quarter: 2019Q1

REPORT INFORMATION
  Report Type: Spontaneous
  Country: CA (occurrence: CA)
  Receive Date: 20180521
  Receipt Date: 20190122
  Transmission Date: 20190417
  Serious: Yes (Hospitalization, Disabling)
  Sender: FDA-Public Use
  Company Number: CA-ACTELION-A-NJ2018-172258

PATIENT
  Age: 54 Year
  Sex: Female
  Weight: 56.69 kg

DRUGS (14)
  1. OPSUMIT [Suspect]
     Active Substance: MACITENTAN
     Indication: PULMONARY ARTERIAL HYPERTENSION
     Dosage: 10 MG, UNK
     Route: 048
     Dates: start: 20181126, end: 20190110
  2. COUMADIN [Concomitant]
     Active Substance: WARFARIN SODIUM
     Dosage: 12MG M, F AND 11.5MG TUE ,WED ,TH, SAT AND SUN
  3. RATIO-LENOLTEC NO 1 [Concomitant]
  4. CARIPUL [Suspect]
     Active Substance: EPOPROSTENOL
     Indication: PULMONARY ARTERIAL HYPERTENSION
     Dosage: UNK
     Route: 042
     Dates: start: 20131009, end: 20180722
  5. ADEMPAS [Concomitant]
     Active Substance: RIOCIGUAT
     Dosage: 2.5 MG, TID
  6. UPTRAVI [Suspect]
     Active Substance: SELEXIPAG
     Indication: PULMONARY ARTERIAL HYPERTENSION
     Dosage: 1600 MCG, BID
     Route: 048
     Dates: start: 20180524, end: 20181201
  7. IRON [Concomitant]
     Active Substance: IRON
  8. VITAMIN D [Concomitant]
     Active Substance: CHOLECALCIFEROL
  9. ADCIRCA [Concomitant]
     Active Substance: TADALAFIL
     Dosage: UNK
     Dates: end: 20181127
  10. TYLENOL [Concomitant]
     Active Substance: ACETAMINOPHEN
     Dosage: 500 MG, PRN
  11. CENTRUM [Concomitant]
     Active Substance: VITAMINS
  12. FERAMAX [Concomitant]
     Active Substance: IRON\POLYSACCHARIDES
  13. PANTOLOC [Concomitant]
     Active Substance: PANTOPRAZOLE SODIUM
  14. K-DUR [Concomitant]
     Active Substance: POTASSIUM CHLORIDE
     Dosage: 1 UNK, QD

REACTIONS (3)
  - Therapy non-responder [Unknown]
  - Catheterisation cardiac abnormal [Unknown]
  - Hepatic enzyme abnormal [Unknown]

NARRATIVE: CASE EVENT DATE: 20180507
